FAERS Safety Report 19051131 (Version 1)
Quarter: 2021Q1

REPORT INFORMATION
  Report Type: Spontaneous
  Country: US (occurrence: US)
  Receive Date: 20210323
  Receipt Date: 20210323
  Transmission Date: 20210420
  Serious: Yes (Hospitalization)
  Sender: FDA-Public Use
  Company Number: None

PATIENT
  Sex: Male

DRUGS (1)
  1. TEMOZOLOMIDE 20MG CAP [Suspect]
     Active Substance: TEMOZOLOMIDE
     Indication: BRAIN NEOPLASM MALIGNANT
     Dosage: ?          OTHER FREQUENCY:QPM;OTHER ROUTE:PO 30 CONSECUTIVEDAYS?
     Route: 048
     Dates: start: 20210224

REACTIONS (2)
  - Pulmonary thrombosis [None]
  - Fatigue [None]

NARRATIVE: CASE EVENT DATE: 20210322
